FAERS Safety Report 8785414 (Version 1)
Quarter: 2012Q4

REPORT INFORMATION
  Report Type: 
  Country: US (occurrence: US)
  Receive Date: 20120914
  Receipt Date: 20120914
  Transmission Date: 20130627
  Serious: Yes (Hospitalization)
  Sender: FDA-Public Use
  Company Number: US-ELI_LILLY_AND_COMPANY-US201209001657

PATIENT
  Age: 57 None
  Sex: Female

DRUGS (4)
  1. HUMULIN NPH [Suspect]
     Indication: DIABETES MELLITUS
     Dosage: 12 u, bid
     Dates: start: 1986, end: 2003
  2. HUMULIN NPH [Suspect]
     Dosage: 16 u, bid
  3. NOVOLOG [Concomitant]
     Dosage: UNK, prn
  4. LEVEMIR [Concomitant]

REACTIONS (11)
  - Chest pain [Unknown]
  - Dyspnoea [Unknown]
  - Dizziness [Unknown]
  - Confusional state [Unknown]
  - Memory impairment [Unknown]
  - Crying [Unknown]
  - Palpitations [Unknown]
  - Malaise [Unknown]
  - Injection site bruising [Unknown]
  - Bronchitis [Recovered/Resolved]
  - Feeling abnormal [Unknown]
